FAERS Safety Report 5238761-4 (Version None)
Quarter: 2007Q1

REPORT INFORMATION
  Report Type: 
  Country: None (occurrence: None)
  Receive Date: 20061208
  Receipt Date: 20050311
  Transmission Date: 20070707
  Serious: Yes (Other)
  Sender: FDA-Public Use
  Company Number: 2005UW03906

PATIENT
  Age: 79 Year
  Sex: Female
  Weight: 70.306 kg

DRUGS (5)
  1. CRESTOR [Suspect]
     Indication: BLOOD CHOLESTEROL INCREASED
     Dosage: 10 MG QD PO
     Route: 048
     Dates: start: 20041101
  2. MOBIC [Concomitant]
  3. TEVETEN [Concomitant]
  4. ZYRTEC [Concomitant]
  5. HYDROCODONE [Concomitant]

REACTIONS (2)
  - HIP FRACTURE [None]
  - MYALGIA [None]
